FAERS Safety Report 17318023 (Version 4)
Quarter: 2020Q2

REPORT INFORMATION
  Report Type: Report from Study
  Country: US (occurrence: US)
  Receive Date: 20200124
  Receipt Date: 20200624
  Transmission Date: 20200713
  Serious: No
  Sender: FDA-Public Use
  Company Number: NVSC2020US017775

PATIENT
  Age: 83 Year
  Sex: Female

DRUGS (1)
  1. ENTRESTO [Suspect]
     Active Substance: SACUBITRIL\VALSARTAN
     Indication: CARDIAC FAILURE
     Dosage: 1 DF (24/26G), QD
     Route: 048
     Dates: start: 201909

REACTIONS (7)
  - Visual impairment [Unknown]
  - Chest pain [Unknown]
  - Ejection fraction decreased [Unknown]
  - Underdose [Unknown]
  - Hypotension [Unknown]
  - Asthenopia [Unknown]
  - Inappropriate schedule of product administration [Unknown]

NARRATIVE: CASE EVENT DATE: 201909
